FAERS Safety Report 19651705 (Version 1)
Quarter: 2021Q3

REPORT INFORMATION
  Report Type: Spontaneous
  Country: US (occurrence: US)
  Receive Date: 20210801
  Receipt Date: 20210801
  Transmission Date: 20211014
  Serious: Yes (Disabling)
  Sender: FDA-Public Use
  Company Number: None

PATIENT
  Age: 33 Year
  Sex: Male
  Weight: 83.91 kg

DRUGS (6)
  1. CLOZAPINE 100MG TAB (AH) #42 [Suspect]
     Active Substance: CLOZAPINE
     Indication: AFFECTIVE DISORDER
  2. CLOZAPINE 200MG TAB (AB) #28 [Suspect]
     Active Substance: CLOZAPINE
     Indication: BIPOLAR II DISORDER
     Route: 048
     Dates: start: 20210725, end: 20210731
  3. CLOZAPINE 100MG TAB (AH) #42 [Suspect]
     Active Substance: CLOZAPINE
     Indication: BIPOLAR II DISORDER
     Route: 048
     Dates: start: 20210725, end: 20210731
  4. CLOZAPINE 200MG TAB (AB) #28 [Suspect]
     Active Substance: CLOZAPINE
     Indication: SCHIZOAFFECTIVE DISORDER
     Route: 048
     Dates: start: 20210725, end: 20210731
  5. CLOZAPINE 100MG TAB (AH) #42 [Suspect]
     Active Substance: CLOZAPINE
     Indication: HALLUCINATION
  6. CLOZAPINE 100MG TAB (AH) #42 [Suspect]
     Active Substance: CLOZAPINE
     Indication: SCHIZOAFFECTIVE DISORDER
     Route: 048
     Dates: start: 20210725, end: 20210731

REACTIONS (6)
  - Circumstance or information capable of leading to medication error [None]
  - Wrong strength [None]
  - Overdose [None]
  - Underdose [None]
  - Product appearance confusion [None]
  - Product physical issue [None]

NARRATIVE: CASE EVENT DATE: 20210731
